FAERS Safety Report 9654003 (Version 1)
Quarter: 2013Q4

REPORT INFORMATION
  Report Type: Spontaneous
  Country: US (occurrence: US)
  Receive Date: 20131029
  Receipt Date: 20131029
  Transmission Date: 20140711
  Serious: No
  Sender: FDA-Public Use
  Company Number: US-BIOGENIDEC-2013BI082607

PATIENT
  Age: 68 Year
  Sex: Female

DRUGS (3)
  1. TECFIDERA [Suspect]
     Indication: MULTIPLE SCLEROSIS
     Route: 048
     Dates: start: 20130614
  2. METHADONE HCL [Concomitant]
  3. KLONOPIN [Concomitant]

REACTIONS (5)
  - Headache [Unknown]
  - Neuralgia [Unknown]
  - Nausea [Unknown]
  - Dyspepsia [Unknown]
  - Abdominal pain [Unknown]
